FAERS Safety Report 4598026-0 (Version None)
Quarter: 2005Q1

REPORT INFORMATION
  Report Type: 
  Country: None (occurrence: None)
  Receive Date: 20050204
  Receipt Date: 20031105
  Transmission Date: 20050727
  Serious: Yes (Hospitalization)
  Sender: FDA-Public Use
  Company Number: PHEH2003US10185

PATIENT
  Sex: Male

DRUGS (5)
  1. CLOZARIL [Suspect]
     Indication: SCHIZOPHRENIA
     Dosage: 300 MG, QD, ORAL
     Route: 048
  2. DEPAKOTE [Concomitant]
  3. RISPERDAL [Concomitant]
  4. CELEXA [Concomitant]
  5. BUSPAR [Concomitant]

REACTIONS (1)
  - PNEUMONIA [None]
